FAERS Safety Report 6236760-7 (Version None)
Quarter: 2009Q2

REPORT INFORMATION
  Report Type: 
  Country: None (occurrence: None)
  Receive Date: 20090619
  Receipt Date: 20090611
  Transmission Date: 20091009
  Serious: Yes (Hospitalization, Other)
  Sender: FDA-Public Use
  Company Number: PHHY2009JP13466

PATIENT
  Sex: Female
  Weight: 61 kg

DRUGS (15)
  1. GLEEVEC [Suspect]
     Indication: ACUTE LYMPHOCYTIC LEUKAEMIA
     Dosage: 600 MG/DAY
     Route: 048
     Dates: start: 20090317, end: 20090410
  2. GLEEVEC [Suspect]
     Dosage: 600 MG/DAY
     Route: 048
     Dates: start: 20090312
  3. DAUNOMYCIN [Suspect]
     Dosage: 100 MG/DAY
     Route: 042
     Dates: start: 20090310, end: 20090312
  4. PREDNISOLONE [Suspect]
     Dosage: 60 MG/DAY
     Route: 048
     Dates: start: 20090307
  5. PREDNISOLONE [Suspect]
     Dosage: 30 MG/DAY
     Route: 048
     Dates: start: 20090401
  6. FUNGIZONE [Concomitant]
     Indication: INFECTION PROPHYLAXIS
  7. ZYLORIC [Concomitant]
     Indication: HYPERURICAEMIA
     Dosage: 100 MG, UNK
     Route: 048
  8. MAGNESIUM OXIDE [Concomitant]
     Indication: CONSTIPATION
     Dosage: 3 G, UNK
     Route: 048
     Dates: start: 20090302
  9. BAKTAR [Concomitant]
     Indication: INFECTION PROPHYLAXIS
     Dosage: 2 DF, UNK
     Route: 048
     Dates: start: 20090311
  10. CRAVIT [Concomitant]
     Indication: INFECTION PROPHYLAXIS
     Dosage: 400 MG, UNK
     Route: 048
     Dates: start: 20090311, end: 20090402
  11. FLUCONAZOLE [Concomitant]
     Indication: INFECTION PROPHYLAXIS
     Dosage: 200 MG, UNK
     Route: 048
  12. BIOFERMIN [Concomitant]
     Indication: INFECTION PROPHYLAXIS
     Dosage: UNK MG, UNK
     Dates: start: 20090401
  13. ZANTAC [Concomitant]
     Indication: GASTRITIS
     Dosage: 300 MG
     Route: 048
     Dates: start: 20090308, end: 20090403
  14. ISODINE [Concomitant]
     Indication: INFECTION PROPHYLAXIS
     Dosage: UNK
     Route: 048
     Dates: start: 20090302
  15. BIOFERMIN R [Concomitant]
     Indication: INFECTION PROPHYLAXIS
     Dosage: 3 G
     Route: 048
     Dates: start: 20090401

REACTIONS (9)
  - ANGIOPATHY [None]
  - BLOOD FIBRINOGEN DECREASED [None]
  - DEEP VEIN THROMBOSIS [None]
  - FATIGUE [None]
  - HYPOAESTHESIA [None]
  - INSOMNIA [None]
  - LIMB DISCOMFORT [None]
  - OEDEMA PERIPHERAL [None]
  - VASCULITIS [None]
